FAERS Safety Report 9435408 (Version 1)
Quarter: 2013Q3

REPORT INFORMATION
  Report Type: Spontaneous
  Country: US (occurrence: US)
  Receive Date: 20130801
  Receipt Date: 20130801
  Transmission Date: 20140515
  Serious: Yes (Hospitalization)
  Sender: FDA-Public Use
  Company Number: US-B.I. PHARMACEUTICALS,INC./RIDGEFIELD-2013-BI-21924BP

PATIENT
  Age: 68 Year
  Sex: Male
  Weight: 96 kg

DRUGS (1)
  1. COMBIVENT [Suspect]
     Indication: CHRONIC OBSTRUCTIVE PULMONARY DISEASE
     Route: 055
     Dates: end: 20130630

REACTIONS (3)
  - Pneumonia [Recovered/Resolved]
  - Coronary artery disease [Recovered/Resolved]
  - Localised infection [Recovered/Resolved]
